FAERS Safety Report 16044820 (Version 1)
Quarter: 2019Q1

REPORT INFORMATION
  Report Type: Spontaneous
  Country: DK (occurrence: DK)
  Receive Date: 20190307
  Receipt Date: 20190307
  Transmission Date: 20190418
  Serious: Yes (Disabling)
  Sender: FDA-Public Use
  Company Number: DK-009507513-1903DNK002035

PATIENT
  Age: 74 Year
  Sex: Male
  Weight: 87 kg

DRUGS (1)
  1. KEYTRUDA [Suspect]
     Active Substance: PEMBROLIZUMAB
     Indication: LUNG NEOPLASM MALIGNANT
     Dosage: DOSE: 2 MILLIGRAMS (MG)/ KILOGRAM (KG) INTRAVENOUSLY (I.V) EVERY THREE (3) WEEKS.
     Route: 042
     Dates: start: 20180313, end: 20190121

REACTIONS (7)
  - Sjogren^s syndrome [Not Recovered/Not Resolved]
  - Periodontitis [Not Recovered/Not Resolved]
  - Dry mouth [Not Recovered/Not Resolved]
  - Visual impairment [Recovering/Resolving]
  - Aptyalism [Not Recovered/Not Resolved]
  - Dry eye [Not Recovered/Not Resolved]
  - Tooth loss [Unknown]

NARRATIVE: CASE EVENT DATE: 2018
